FAERS Safety Report 5219111-6 (Version None)
Quarter: 2007Q1

REPORT INFORMATION
  Report Type: 
  Country: None (occurrence: None)
  Receive Date: 20070124
  Receipt Date: 20070124
  Transmission Date: 20070707
  Serious: Yes (Disabling, Other)
  Sender: FDA-Public Use
  Company Number: None

PATIENT
  Age: 48 Year
  Sex: Female
  Weight: 77.1115 kg

DRUGS (1)
  1. NORTRIPTYLINE HCL [Suspect]
     Indication: MIGRAINE
     Dosage: 10 MG  1 AT NIGHT  MOUTH
     Route: 048
     Dates: start: 20060406, end: 20060416

REACTIONS (2)
  - NEPHROTIC SYNDROME [None]
  - URINE ODOUR ABNORMAL [None]
